FAERS Safety Report 6375551-3 (Version None)
Quarter: 2009Q3

REPORT INFORMATION
  Report Type: 
  Country: None (occurrence: None)
  Receive Date: 20090924
  Receipt Date: 20080911
  Transmission Date: 20100115
  Serious: Yes (Other)
  Sender: FDA-Public Use
  Company Number: GB-BAYER-200825969GPV

PATIENT
  Sex: Female

DRUGS (5)
  1. ACETYLSALICYLIC ACID [Suspect]
     Indication: DRUG USE FOR UNKNOWN INDICATION
  2. HEPARIN [Suspect]
     Indication: DRUG USE FOR UNKNOWN INDICATION
  3. CARBAMAZEPINE [Suspect]
     Indication: DRUG USE FOR UNKNOWN INDICATION
     Route: 065
  4. ACETAZOLAMIDE [Suspect]
     Indication: DRUG USE FOR UNKNOWN INDICATION
     Route: 065
  5. LAMOTRIGINE [Suspect]
     Indication: DRUG USE FOR UNKNOWN INDICATION
     Route: 065

REACTIONS (1)
  - NO ADVERSE EVENT [None]
